FAERS Safety Report 7980773-1 (Version None)
Quarter: 2011Q4

REPORT INFORMATION
  Report Type: 
  Country: None (occurrence: None)
  Receive Date: 20111214
  Receipt Date: 20111114
  Transmission Date: 20120403
  Serious: No
  Sender: FDA-Public Use
  Company Number: US-BAYER-2011-111505

PATIENT
  Age: 57 Year
  Sex: Male
  Weight: 122.45 kg

DRUGS (18)
  1. VITAMIN D [Concomitant]
  2. OXYCONTIN [Concomitant]
  3. ASPIRIN [Concomitant]
  4. JANUMET [Concomitant]
  5. VENTOLIN [Concomitant]
  6. OXYCODONE HCL [Concomitant]
  7. VITAMIN E [Concomitant]
  8. GABAPENTIN [Concomitant]
  9. AMARYL [Concomitant]
  10. FISH OIL [Concomitant]
  11. CLONAZEPAM [Concomitant]
  12. PHILLIPS' LIQUID GELS STOOL SOFTENER [Suspect]
     Indication: CONSTIPATION
     Dosage: 3 U, UNK
     Route: 048
     Dates: start: 20111109, end: 20111114
  13. REMERON [Concomitant]
  14. ALLEGRA [Concomitant]
  15. EXFORGE [Concomitant]
  16. TRICOR [Concomitant]
  17. CRESTOR [Concomitant]
  18. LOVAZA [Concomitant]

REACTIONS (4)
  - DRUG ADMINISTRATION ERROR [None]
  - CHROMATURIA [None]
  - GASTROINTESTINAL SOUNDS ABNORMAL [None]
  - FAECES PALE [None]
